FAERS Safety Report 16300243 (Version 2)
Quarter: 2022Q1

REPORT INFORMATION
  Report Type: Spontaneous
  Country: US (occurrence: US)
  Receive Date: 20190510
  Receipt Date: 20220301
  Transmission Date: 20220424
  Serious: Yes (Other)
  Sender: FDA-Public Use
  Company Number: PHEH2019US020069

PATIENT
  Sex: Male

DRUGS (1)
  1. TASIGNA [Suspect]
     Active Substance: NILOTINIB
     Indication: Chronic myeloid leukaemia
     Dosage: UNK UNK, Q12H
     Route: 048
     Dates: start: 201512, end: 201607

REACTIONS (19)
  - Hypokalaemia [Unknown]
  - Coronary artery disease [Unknown]
  - Coronary artery occlusion [Unknown]
  - Vertebral artery occlusion [Unknown]
  - Carotid artery occlusion [Unknown]
  - Chronic gastritis [Unknown]
  - Peripheral vascular disorder [Unknown]
  - Vitamin D deficiency [Unknown]
  - Dyspnoea exertional [Unknown]
  - Intermittent claudication [Unknown]
  - Dyspnoea [Unknown]
  - Iron deficiency anaemia [Unknown]
  - Injury [Unknown]
  - Hyperlipidaemia [Unknown]
  - Arteriosclerosis [Unknown]
  - Hypertension [Unknown]
  - Pain [Unknown]
  - Anxiety [Unknown]
  - Emotional distress [Unknown]
